FAERS Safety Report 22394388 (Version 1)
Quarter: 2023Q2

REPORT INFORMATION
  Report Type: Spontaneous
  Country: JP (occurrence: JP)
  Receive Date: 20230601
  Receipt Date: 20230601
  Transmission Date: 20230722
  Serious: Yes (Hospitalization, Other)
  Sender: FDA-Public Use
  Company Number: JP-PFIZER INC-PV202300096447

PATIENT
  Age: 78 Year
  Sex: Male

DRUGS (2)
  1. ESTRAMUSTINE [Suspect]
     Active Substance: ESTRAMUSTINE
     Indication: Prostate cancer
     Dosage: UNK
     Route: 048
  2. DEGARELIX ACETATE [Concomitant]
     Active Substance: DEGARELIX ACETATE
     Indication: Prostate cancer
     Dosage: UNK

REACTIONS (4)
  - Mitral valve stenosis [Unknown]
  - Prosthetic valve endocarditis [Unknown]
  - Bacterial infection [Unknown]
  - Cutibacterium acnes infection [Unknown]
